FAERS Safety Report 10154784 (Version 1)
Quarter: 2014Q2

REPORT INFORMATION
  Report Type: Spontaneous
  Country: US (occurrence: US)
  Receive Date: 20140506
  Receipt Date: 20140506
  Transmission Date: 20141212
  Serious: No
  Sender: FDA-Public Use
  Company Number: US-B.I. PHARMACEUTICALS,INC./RIDGEFIELD-2014-BI-19033BP

PATIENT
  Age: 92 Year
  Sex: Male

DRUGS (2)
  1. ZANTAC 75 (RANITIDINE HYDROCHLORIDE) [Suspect]
     Indication: FLATULENCE
     Dosage: 150 MG
     Route: 048
     Dates: start: 20140421
  2. ALENDRONATE [Concomitant]
     Route: 065

REACTIONS (1)
  - Off label use [Not Recovered/Not Resolved]
